FAERS Safety Report 17771102 (Version 1)
Quarter: 2020Q2

REPORT INFORMATION
  Report Type: Spontaneous
  Country: US (occurrence: US)
  Receive Date: 20200512
  Receipt Date: 20200512
  Transmission Date: 20200714
  Serious: Yes (Death)
  Sender: FDA-Public Use
  Company Number: None

PATIENT
  Age: 64 Year
  Sex: Male

DRUGS (19)
  1. AMLODIPINE [Concomitant]
     Active Substance: AMLODIPINE BESYLATE
  2. EVEROLIMUS. [Concomitant]
     Active Substance: EVEROLIMUS
  3. FUROSEMIDE. [Concomitant]
     Active Substance: FUROSEMIDE
  4. MAG OXIDE [Concomitant]
     Active Substance: MAGNESIUM OXIDE
  5. ZORTRESS [Concomitant]
     Active Substance: EVEROLIMUS
  6. LANTUS [Concomitant]
     Active Substance: INSULIN GLARGINE
  7. ONDANSETRON [Concomitant]
     Active Substance: ONDANSETRON
  8. PANTOPRAZOLE [Concomitant]
     Active Substance: PANTOPRAZOLE
  9. PREDNISONE. [Concomitant]
     Active Substance: PREDNISONE
  10. SODIUM BICARB [Concomitant]
     Active Substance: SODIUM BICARBONATE
  11. VITAMIN D [Concomitant]
     Active Substance: VITAMIN D NOS
  12. CYCLOSPORINE. [Concomitant]
     Active Substance: CYCLOSPORINE
  13. HYDROCO/APAP [Concomitant]
     Active Substance: ACETAMINOPHEN\HYDROCODONE
  14. CAPECITABINE. [Suspect]
     Active Substance: CAPECITABINE
     Indication: BILE DUCT CANCER
     Dosage: ?          OTHER FREQUENCY:DAILY, 14 DAYS;?
     Route: 048
     Dates: start: 20200218, end: 20200509
  15. AMIODARONE [Concomitant]
     Active Substance: AMIODARONE
  16. NOVOLOG [Concomitant]
     Active Substance: INSULIN ASPART
  17. XIFAXAN [Concomitant]
     Active Substance: RIFAXIMIN
  18. HUMALOG [Concomitant]
     Active Substance: INSULIN LISPRO
  19. METOPROLOL TARTRATE. [Concomitant]
     Active Substance: METOPROLOL TARTRATE

REACTIONS (1)
  - Death [None]
